FAERS Safety Report 11336438 (Version 1)
Quarter: 2015Q3

REPORT INFORMATION
  Report Type: Spontaneous
  Country: US (occurrence: US)
  Receive Date: 20150804
  Receipt Date: 20150804
  Transmission Date: 20151125
  Serious: No
  Sender: FDA-Public Use
  Company Number: US-ASTRAZENECA-2015SE65244

PATIENT
  Sex: Male
  Weight: 158.8 kg

DRUGS (4)
  1. BYDUREON [Suspect]
     Active Substance: EXENATIDE
     Indication: TYPE 2 DIABETES MELLITUS
     Route: 058
  2. INVOKANA [Concomitant]
     Active Substance: CANAGLIFLOZIN
  3. ENALAPRIL [Concomitant]
     Active Substance: ENALAPRIL
  4. METFORMAN [Concomitant]

REACTIONS (7)
  - Pruritus generalised [Unknown]
  - Pyrexia [Unknown]
  - Injection site erythema [Unknown]
  - Injection site swelling [Unknown]
  - Injection site nodule [Unknown]
  - Rash [Unknown]
  - Injection site pruritus [Unknown]
